FAERS Safety Report 6274013-1 (Version None)
Quarter: 2009Q3

REPORT INFORMATION
  Report Type: 
  Country: None (occurrence: None)
  Receive Date: 20090720
  Receipt Date: 20090708
  Transmission Date: 20100115
  Serious: Yes (Hospitalization)
  Sender: FDA-Public Use
  Company Number: FR-PFIZER INC-2009237416

PATIENT
  Age: 52 Year

DRUGS (3)
  1. LYRICA [Suspect]
     Indication: NEURALGIA
     Dosage: 50 /DAY
     Route: 048
     Dates: end: 20090518
  2. SOLUPRED [Suspect]
     Indication: BACK PAIN
     Dosage: 80 MG, 1X/DAY
     Route: 048
     Dates: start: 20090509, end: 20090516
  3. PROPOFAN [Concomitant]

REACTIONS (2)
  - HYPOKALAEMIA [None]
  - PANCREATITIS ACUTE [None]
